FAERS Safety Report 19056324 (Version 1)
Quarter: 2021Q1

REPORT INFORMATION
  Report Type: Spontaneous
  Country: US (occurrence: US)
  Receive Date: 20210324
  Receipt Date: 20210324
  Transmission Date: 20210420
  Serious: Yes (Death)
  Sender: FDA-Public Use
  Company Number: None

PATIENT
  Age: 53 Year
  Sex: Male

DRUGS (1)
  1. POMALYST [Suspect]
     Active Substance: POMALIDOMIDE
     Indication: PLASMA CELL MYELOMA
     Route: 048
     Dates: start: 20190718, end: 20210226

REACTIONS (7)
  - Unresponsive to stimuli [None]
  - Febrile neutropenia [None]
  - Diarrhoea [None]
  - Pancytopenia [None]
  - Electrolyte imbalance [None]
  - Metabolic acidosis [None]
  - Bacteraemia [None]

NARRATIVE: CASE EVENT DATE: 20210226
